FAERS Safety Report 10110977 (Version 1)
Quarter: 2014Q2

REPORT INFORMATION
  Report Type: Spontaneous
  Country: US (occurrence: None)
  Receive Date: 20140424
  Receipt Date: 20140424
  Transmission Date: 20141212
  Serious: Yes (Other)
  Sender: FDA-Public Use
  Company Number: None

PATIENT
  Age: 89 Year
  Sex: Female
  Weight: 44.45 kg

DRUGS (2)
  1. ELIQUIS [Suspect]
     Indication: THROMBOSIS PROPHYLAXIS
     Route: 048
     Dates: start: 20140319, end: 20140421
  2. ELIQUIS [Suspect]
     Route: 048
     Dates: start: 20140319, end: 20140421

REACTIONS (4)
  - Rash pruritic [None]
  - Breast mass [None]
  - Lymphadenitis [None]
  - Drug ineffective [None]
